FAERS Safety Report 6910471-4 (Version None)
Quarter: 2010Q3

REPORT INFORMATION
  Report Type: 
  Country: None (occurrence: None)
  Receive Date: 20100806
  Receipt Date: 20100802
  Transmission Date: 20110219
  Serious: Yes (Death)
  Sender: FDA-Public Use
  Company Number: JP-BRISTOL-MYERS SQUIBB COMPANY-15221104

PATIENT

DRUGS (3)
  1. BRIPLATIN [Suspect]
     Indication: OESOPHAGEAL SQUAMOUS CELL CARCINOMA
     Route: 041
  2. FLUOROURACIL [Suspect]
     Indication: OESOPHAGEAL SQUAMOUS CELL CARCINOMA
  3. RADIOTHERAPY [Suspect]
     Indication: OESOPHAGEAL SQUAMOUS CELL CARCINOMA

REACTIONS (1)
  - DEATH [None]
